FAERS Safety Report 8084156-8 (Version None)
Quarter: 2012Q1

REPORT INFORMATION
  Report Type: 
  Country: None (occurrence: None)
  Receive Date: 20120128
  Receipt Date: 20110115
  Transmission Date: 20120608
  Serious: Yes (Other)
  Sender: FDA-Public Use
  Company Number: US-ABBOTT-11P-163-0699336-00

PATIENT
  Age: 79 Year
  Sex: Female

DRUGS (6)
  1. PENTASA [Concomitant]
     Indication: CROHN'S DISEASE
  2. BENTYL [Concomitant]
     Indication: CROHN'S DISEASE
  3. HUMIRA [Suspect]
     Indication: CROHN'S DISEASE
     Dates: start: 20100101, end: 20101201
  4. DEXILANT [Concomitant]
     Indication: GASTROOESOPHAGEAL REFLUX DISEASE
  5. PROBIOTICS [Concomitant]
     Indication: PRODUCT USED FOR UNKNOWN INDICATION
  6. HUMIRA [Suspect]

REACTIONS (4)
  - CROHN'S DISEASE [None]
  - SINUSITIS [None]
  - DEVICE MALFUNCTION [None]
  - CHOLECYSTECTOMY [None]
